FAERS Safety Report 9702062 (Version 1)
Quarter: 2013Q4

REPORT INFORMATION
  Report Type: Spontaneous
  Country: AT (occurrence: AT)
  Receive Date: 20131121
  Receipt Date: 20131121
  Transmission Date: 20140711
  Serious: Yes (Other)
  Sender: FDA-Public Use
  Company Number: AT-ROCHE-1307314

PATIENT
  Age: 80 Year
  Sex: Female

DRUGS (1)
  1. ROACTEMRA [Suspect]
     Indication: RHEUMATOID ARTHRITIS
     Dosage: CONCETRATION:20 MG/DL IN 20 ML
     Route: 065

REACTIONS (1)
  - Rheumatoid nodule [Recovering/Resolving]
